FAERS Safety Report 22528833 (Version 1)
Quarter: 2023Q2

REPORT INFORMATION
  Report Type: Spontaneous
  Country: CN (occurrence: CN)
  Receive Date: 20230607
  Receipt Date: 20230607
  Transmission Date: 20230722
  Serious: No
  Sender: FDA-Public Use
  Company Number: CN-ALKEM LABORATORIES LIMITED-CN-ALKEM-2023-05444

PATIENT
  Sex: Female

DRUGS (1)
  1. TACROLIMUS [Suspect]
     Active Substance: TACROLIMUS
     Indication: Product used for unknown indication
     Dosage: BID,(0.025-0.05 MG/KG) ON THE 15TH AND 30TH DAYS OF THE MEDICATION REGIMEN
     Route: 065

REACTIONS (2)
  - Rash [Unknown]
  - Exposure during pregnancy [Unknown]
